FAERS Safety Report 19069427 (Version 1)
Quarter: 2021Q1

REPORT INFORMATION
  Report Type: Spontaneous
  Country: US (occurrence: US)
  Receive Date: 20210329
  Receipt Date: 20210329
  Transmission Date: 20210420
  Serious: Yes (Hospitalization)
  Sender: FDA-Public Use
  Company Number: None

PATIENT
  Age: 44 Year
  Sex: Female
  Weight: 90.45 kg

DRUGS (1)
  1. DUPIXENT [Suspect]
     Active Substance: DUPILUMAB
     Indication: ECZEMA
     Dosage: ?          OTHER FREQUENCY:Q2 WEEKS;?
     Route: 058
     Dates: start: 20210208, end: 20210308

REACTIONS (7)
  - Delirium [None]
  - Abnormal behaviour [None]
  - Tearfulness [None]
  - Fatigue [None]
  - Insomnia [None]
  - Bipolar disorder [None]
  - Emotional distress [None]

NARRATIVE: CASE EVENT DATE: 20210308
